FAERS Safety Report 4514997-2 (Version None)
Quarter: 2004Q4

REPORT INFORMATION
  Report Type: 
  Country: None (occurrence: None)
  Receive Date: 20041126
  Receipt Date: 20041102
  Transmission Date: 20050328
  Serious: Yes (Life-Threatening, Other)
  Sender: FDA-Public Use
  Company Number: 2004234159JP

PATIENT
  Age: 56 Year
  Sex: Female

DRUGS (9)
  1. IDARUBICIN HYDROCHLORIDE SOLUTION, STERILE (IDARUBICIN HYDROCHLORIDE) [Suspect]
     Indication: ACUTE MYELOID LEUKAEMIA
     Dosage: 20 MG (CYCLE 1 (2 DAYS)), INTRAVENOUS
     Route: 042
     Dates: start: 20030701, end: 20030701
  2. CYTARABINE [Suspect]
     Indication: ACUTE MYELOID LEUKAEMIA
     Dosage: 180 MG (CYCLE 1 (2 DAYS)), INTRAVENOUS
     Route: 042
     Dates: start: 20030701, end: 20030702
  3. GRANISETRON (GRANISETRON) [Concomitant]
  4. GABEXATE MESILATE (GABEXATE MESILATE) [Concomitant]
  5. CEFEPIME HYDROCHLORIDE (CEFEPIME HYDROCHLORIDE) [Concomitant]
  6. AMINOPHYLLIN [Concomitant]
  7. FLUCONAZOLE [Concomitant]
  8. BACTRIM [Concomitant]
  9. ALLOPURINOL [Concomitant]

REACTIONS (9)
  - BONE MARROW DEPRESSION [None]
  - FEBRILE NEUTROPENIA [None]
  - HEPATIC CONGESTION [None]
  - HEPATIC ENCEPHALOPATHY [None]
  - HEPATIC NECROSIS [None]
  - HEPATITIS FULMINANT [None]
  - INFECTION [None]
  - TOXIC SKIN ERUPTION [None]
  - VENOOCCLUSIVE LIVER DISEASE [None]
